FAERS Safety Report 24948109 (Version 1)
Quarter: 2025Q1

REPORT INFORMATION
  Report Type: Spontaneous
  Country: GB (occurrence: GB)
  Receive Date: 20250210
  Receipt Date: 20250210
  Transmission Date: 20250409
  Serious: No
  Sender: ALKEM
  Company Number: None

PATIENT
  Age: 60 Year
  Sex: Male
  Weight: 81 kg

DRUGS (11)
  1. EZETIMIBE [Suspect]
     Active Substance: EZETIMIBE
     Indication: Ill-defined disorder
     Route: 065
     Dates: start: 20240130
  2. AMITRIPTYLINE HYDROCHLORIDE [Concomitant]
     Active Substance: AMITRIPTYLINE HYDROCHLORIDE
     Indication: Pain
     Route: 065
     Dates: start: 20240108
  3. AMITRIPTYLINE HYDROCHLORIDE [Concomitant]
     Active Substance: AMITRIPTYLINE HYDROCHLORIDE
     Indication: Ill-defined disorder
  4. AMLODIPINE [Concomitant]
     Active Substance: AMLODIPINE BESYLATE
     Indication: Ill-defined disorder
     Dosage: UNK, QD, TAKE ONE DAILY
     Route: 065
     Dates: start: 20230622
  5. ASPIRIN [Concomitant]
     Active Substance: ASPIRIN
     Indication: Ill-defined disorder
     Dosage: 1 DOSAGE FORM, OD TAKE ONE TABLET ONCE A DAY WITH OR AFTER FOOD
     Route: 065
     Dates: start: 20240109
  6. CLOPIDOGREL [Concomitant]
     Active Substance: CLOPIDOGREL BISULFATE
     Indication: Ill-defined disorder
     Dosage: 1 DOSAGE FORM, OD
     Route: 065
     Dates: start: 20230622, end: 20240109
  7. EZETIMIBE [Concomitant]
     Active Substance: EZETIMIBE
     Indication: Ill-defined disorder
     Dosage: 1 DOSAGE FORM, OD
     Route: 065
     Dates: start: 20231115, end: 20240130
  8. INCLISIRAN [Concomitant]
     Active Substance: INCLISIRAN
     Indication: Ill-defined disorder
     Route: 065
     Dates: start: 20240110, end: 20240111
  9. ISOSORBIDE MONONITRATE [Concomitant]
     Active Substance: ISOSORBIDE MONONITRATE
     Indication: Ill-defined disorder
     Dosage: 1 DOSAGE FORM, BID
     Route: 065
     Dates: start: 20231208
  10. LANSOPRAZOLE [Concomitant]
     Active Substance: LANSOPRAZOLE
     Indication: Ill-defined disorder
     Dosage: 1 DOSAGE FORM, OD
     Route: 065
     Dates: start: 20230622
  11. LOSARTAN [Concomitant]
     Active Substance: LOSARTAN
     Indication: Ill-defined disorder
     Dosage: 1 DOSAGE FORM, OD
     Route: 065
     Dates: start: 20230622

REACTIONS (2)
  - Muscle spasms [Recovered/Resolved]
  - Diarrhoea [Recovered/Resolved]

NARRATIVE: CASE EVENT DATE: 20240130
